FAERS Safety Report 11998637 (Version 1)
Quarter: 2016Q1

REPORT INFORMATION
  Report Type: Spontaneous
  Country: US (occurrence: None)
  Receive Date: 20160203
  Receipt Date: 20160203
  Transmission Date: 20160526
  Serious: Yes (Hospitalization, Disabling)
  Sender: FDA-Public Use
  Company Number: None

PATIENT
  Sex: Male
  Weight: 74.84 kg

DRUGS (3)
  1. TRAZODONE [Suspect]
     Active Substance: TRAZODONE HYDROCHLORIDE
     Indication: SLEEP DISORDER
     Dosage: 150 MG ONE AT BEDTIME, BY MOUTH,
     Dates: start: 201509
  2. BONIRAPRIL [Concomitant]
  3. HYDROCODONE [Concomitant]
     Active Substance: HYDROCODONE

REACTIONS (6)
  - Headache [None]
  - Memory impairment [None]
  - Dyspnoea [None]
  - Visual impairment [None]
  - Anxiety [None]
  - Fall [None]

NARRATIVE: CASE EVENT DATE: 201507
